FAERS Safety Report 5361823-8 (Version None)
Quarter: 2007Q2

REPORT INFORMATION
  Report Type: 
  Country: None (occurrence: None)
  Receive Date: 20070530
  Receipt Date: 20070313
  Transmission Date: 20071010
  Serious: No
  Sender: FDA-Public Use
  Company Number: 2007PV031622

PATIENT
  Age: 68 Year
  Sex: Female

DRUGS (4)
  1. BYETTA [Suspect]
     Indication: DIABETES MELLITUS NON-INSULIN-DEPENDENT
     Dosage: SEE IMAGE
     Route: 058
     Dates: start: 20070115, end: 20070215
  2. BYETTA [Suspect]
     Indication: DIABETES MELLITUS NON-INSULIN-DEPENDENT
     Dosage: SEE IMAGE
     Route: 058
     Dates: start: 20070215, end: 20070301
  3. METFORMIN HCL [Concomitant]
  4. AMARYL [Concomitant]

REACTIONS (5)
  - BLOOD GLUCOSE FLUCTUATION [None]
  - DIARRHOEA [None]
  - GLOSSODYNIA [None]
  - HYPERCHLORHYDRIA [None]
  - PHARYNGOLARYNGEAL PAIN [None]
